FAERS Safety Report 8171144-6 (Version None)
Quarter: 2012Q1

REPORT INFORMATION
  Report Type: 
  Country: None (occurrence: None)
  Receive Date: 20120228
  Receipt Date: 20111128
  Transmission Date: 20120608
  Serious: No
  Sender: FDA-Public Use
  Company Number: US-BRISTOL-MYERS SQUIBB COMPANY-16146250

PATIENT
  Age: 53 Year
  Sex: Female

DRUGS (2)
  1. ONGLYZA [Suspect]
     Indication: TYPE 2 DIABETES MELLITUS
     Route: 048
     Dates: start: 20110914
  2. JANUVIA [Concomitant]

REACTIONS (4)
  - ERUCTATION [None]
  - FLATULENCE [None]
  - ABDOMINAL DISTENSION [None]
  - NAUSEA [None]
